FAERS Safety Report 25145037 (Version 1)
Quarter: 2025Q2

REPORT INFORMATION
  Report Type: Spontaneous
  Country: US (occurrence: None)
  Receive Date: 20250401
  Receipt Date: 20250401
  Transmission Date: 20250717
  Serious: Yes (Hospitalization, Disabling)
  Sender: FDA-CTU
  Company Number: None

PATIENT
  Age: 34 Year
  Sex: Female
  Weight: 90 kg

DRUGS (4)
  1. PHENTERMINE [Suspect]
     Active Substance: PHENTERMINE
     Indication: Weight decreased
     Dates: end: 20201204
  2. Gastric stimulator [Concomitant]
  3. LEVOTHYROXINE [Concomitant]
     Active Substance: LEVOTHYROXINE
  4. anti-anxiety meds [Concomitant]
     Dates: end: 20201204

REACTIONS (3)
  - Impaired gastric emptying [None]
  - Cyclic vomiting syndrome [None]
  - Disability [None]

NARRATIVE: CASE EVENT DATE: 20190501
